FAERS Safety Report 24274395 (Version 1)
Quarter: 2024Q3

REPORT INFORMATION
  Report Type: Spontaneous
  Country: JP (occurrence: JP)
  Receive Date: 20240902
  Receipt Date: 20240902
  Transmission Date: 20241016
  Serious: Yes (Other)
  Sender: ACCORD
  Company Number: JP-MLMSERVICE-20240814-PI162182-00082-1

PATIENT
  Age: 57 Year
  Sex: Female

DRUGS (4)
  1. CARBOPLATIN [Suspect]
     Active Substance: CARBOPLATIN
     Indication: Metastases to lung
     Dosage: SINGLE DOSE OF STANDARD CHEMOTHERAPY
     Dates: end: 2021
  2. DOCETAXEL [Suspect]
     Active Substance: DOCETAXEL\DOCETAXEL ANHYDROUS
     Indication: Endometrial adenocarcinoma
     Dosage: AUC 5, SINGLE DOSE OF STANDARD CHEMOTHERAPY
  3. CARBOPLATIN [Suspect]
     Active Substance: CARBOPLATIN
     Indication: Metastases to lymph nodes
     Dosage: SINGLE DOSE OF STANDARD CHEMOTHERAPY
     Dates: end: 2021
  4. DOCETAXEL [Suspect]
     Active Substance: DOCETAXEL\DOCETAXEL ANHYDROUS
     Indication: Metastases to lymph nodes
     Dosage: AUC 5, SINGLE DOSE OF STANDARD CHEMOTHERAPY

REACTIONS (7)
  - Stomatitis [Unknown]
  - Nausea [Unknown]
  - Coeliac disease [Unknown]
  - Decreased appetite [Unknown]
  - Hypoaesthesia [Unknown]
  - Leukopenia [Unknown]
  - Diarrhoea [Unknown]
